FAERS Safety Report 7530075-2 (Version None)
Quarter: 2011Q2

REPORT INFORMATION
  Report Type: 
  Country: None (occurrence: None)
  Receive Date: 20110607
  Receipt Date: 20110606
  Transmission Date: 20111010
  Serious: Yes (Life-Threatening, Hospitalization, Other)
  Sender: FDA-Public Use
  Company Number: PHFR2011GB01115

PATIENT
  Sex: Male

DRUGS (3)
  1. CLOZARIL [Suspect]
     Dates: end: 20110202
  2. CLOZARIL [Suspect]
     Indication: SCHIZOPHRENIA
     Dosage: UNK
     Route: 048
     Dates: start: 20110117
  3. CLOZARIL [Suspect]
     Dosage: 100 MG, BID

REACTIONS (7)
  - CARDIAC FAILURE [None]
  - MYOCARDITIS [None]
  - CARDIOMEGALY [None]
  - NEUROLEPTIC MALIGNANT SYNDROME [None]
  - PYREXIA [None]
  - TROPONIN INCREASED [None]
  - VIRAL INFECTION [None]
